FAERS Safety Report 5027036-4 (Version None)
Quarter: 2006Q2

REPORT INFORMATION
  Report Type: 
  Country: None (occurrence: None)
  Receive Date: 20060609
  Receipt Date: 20060601
  Transmission Date: 20061013
  Serious: Yes (Other)
  Sender: FDA-Public Use
  Company Number: 2006070023

PATIENT
  Age: 16 Year
  Sex: Male

DRUGS (3)
  1. ZELDOX (CAPSULES) (ZIPRASIDONE) [Suspect]
     Indication: PSYCHOTIC DISORDER
     Dosage: 80  MG (40 MG, 2 IN 1 D), ORAL
     Route: 048
     Dates: start: 20020501
  2. ZYPREXA [Suspect]
     Indication: PSYCHOTIC DISORDER
     Dosage: 5 MG DAILY, ORAL
     Route: 048
     Dates: start: 20030501
  3. DISIPAL [Concomitant]

REACTIONS (5)
  - CONDITION AGGRAVATED [None]
  - PSYCHOTIC DISORDER [None]
  - SKIN STRIAE [None]
  - SUICIDE ATTEMPT [None]
  - WEIGHT INCREASED [None]
